FAERS Safety Report 7053848-1 (Version None)
Quarter: 2010Q4

REPORT INFORMATION
  Report Type: 
  Country: None (occurrence: None)
  Receive Date: 20101020
  Receipt Date: 20101011
  Transmission Date: 20110411
  Serious: Yes (Hospitalization)
  Sender: FDA-Public Use
  Company Number: PHHY2010US67772

PATIENT
  Age: 51 Year
  Sex: Female
  Weight: 78 kg

DRUGS (16)
  1. MYFORTIC [Suspect]
     Indication: RENAL TRANSPLANT
     Dosage: 1440 MG DAILY
     Route: 048
     Dates: start: 20100901
  2. MYFORTIC [Suspect]
     Indication: PROPHYLAXIS AGAINST TRANSPLANT REJECTION
  3. ZOCOR [Concomitant]
     Indication: BLOOD CHOLESTEROL INCREASED
     Dosage: 10 MG DAILY
     Route: 048
     Dates: start: 20080905
  4. PRILOSEC [Concomitant]
     Indication: GASTROOESOPHAGEAL REFLUX DISEASE
     Dosage: 20 MG DAILY
     Route: 048
     Dates: start: 20100101
  5. PRILOSEC [Concomitant]
     Indication: DYSPEPSIA
     Dosage: 40 MG DAILY
     Route: 048
     Dates: start: 20100901
  6. BACTRIM [Concomitant]
     Indication: ANTIBIOTIC PROPHYLAXIS
     Dosage: 400 MG-80 MG DAILY
     Route: 048
     Dates: start: 20100901
  7. PROGRAF [Concomitant]
     Indication: PROPHYLAXIS AGAINST TRANSPLANT REJECTION
     Dosage: 5 MG DAILY
     Route: 048
     Dates: start: 20100901
  8. PROGRAF [Concomitant]
     Dosage: 4.5 MG DAILY
     Route: 048
     Dates: start: 20100911
  9. METOPROLOL [Concomitant]
     Indication: HYPERTENSION
     Dosage: 50 MG DAILY
     Route: 048
     Dates: start: 20100901
  10. TRICOR [Concomitant]
     Indication: HYPERCHOLESTEROLAEMIA
     Dosage: 67 MG DAILY
     Route: 048
     Dates: start: 20070901
  11. TRICOR [Concomitant]
     Dosage: 48 MG DAILY
     Route: 048
     Dates: start: 20091118
  12. MYCELEX [Concomitant]
     Indication: ANTIVIRAL PROPHYLAXIS
     Dosage: 40 MG DAILY
     Route: 048
     Dates: start: 20100901
  13. VALCYTE [Concomitant]
     Indication: ANTIVIRAL PROPHYLAXIS
     Dosage: 450 MG DAILY
     Route: 048
     Dates: start: 20100901
  14. EFFEXOR XR [Concomitant]
     Indication: DEPRESSION
     Dosage: 75 MG DAILY
     Route: 048
     Dates: start: 20070904
  15. EFFEXOR XR [Concomitant]
     Dosage: 37.5 MG DAILY
     Route: 048
     Dates: start: 20090916
  16. ALBUTEROL [Concomitant]
     Indication: ASTHMA

REACTIONS (1)
  - POST PROCEDURAL SWELLING [None]
